FAERS Safety Report 21705179 (Version 1)
Quarter: 2022Q4

REPORT INFORMATION
  Report Type: Spontaneous
  Country: DE (occurrence: DE)
  Receive Date: 20221209
  Receipt Date: 20221209
  Transmission Date: 20230112
  Serious: Yes (Other)
  Sender: FDA-Public Use
  Company Number: DE-SA-SAC20221208000146

PATIENT
  Age: 33 Year
  Sex: Female
  Weight: 85 kg

DRUGS (1)
  1. LEVOCETIRIZINE [Suspect]
     Active Substance: LEVOCETIRIZINE
     Indication: Conjunctivitis allergic
     Dosage: 5 MG, QD
     Route: 048
     Dates: start: 20221026, end: 20221105

REACTIONS (3)
  - Condition aggravated [Unknown]
  - Depression [Unknown]
  - Suicidal ideation [Unknown]

NARRATIVE: CASE EVENT DATE: 20221030
